FAERS Safety Report 16770899 (Version 1)
Quarter: 2019Q3

REPORT INFORMATION
  Report Type: Spontaneous
  Country: US (occurrence: US)
  Receive Date: 20190904
  Receipt Date: 20190904
  Transmission Date: 20191005
  Serious: Yes (Other)
  Sender: FDA-Public Use
  Company Number: US-AKORN PHARMACEUTICALS-2019AKN01755

PATIENT
  Age: 17 Year
  Sex: Female
  Weight: 54.42 kg

DRUGS (3)
  1. HYDROCORTISONE. [Concomitant]
     Active Substance: HYDROCORTISONE
  2. MYORISAN [Suspect]
     Active Substance: ISOTRETINOIN
     Indication: ACNE
     Dosage: 40 MG TO 80 MG, 1X/DAY
     Dates: start: 20190329, end: 20190708
  3. UNSPECIFIED BIRTH CONTROL IMPLANT [Concomitant]

REACTIONS (3)
  - Fatigue [Unknown]
  - Mood altered [Unknown]
  - Off label use [Recovered/Resolved]

NARRATIVE: CASE EVENT DATE: 2019
